FAERS Safety Report 5153944-X (Version None)
Quarter: 2006Q4

REPORT INFORMATION
  Report Type: 
  Country: None (occurrence: None)
  Receive Date: 20061120
  Receipt Date: 20061108
  Transmission Date: 20070319
  Serious: Yes (Hospitalization)
  Sender: FDA-Public Use
  Company Number: PHBS2006BR17533

PATIENT
  Age: 64 Year
  Sex: Male

DRUGS (2)
  1. GLEEVEC [Suspect]
     Indication: BLAST CRISIS IN MYELOGENOUS LEUKAEMIA
     Dosage: 600 MG/DAY
     Dates: start: 20061102
  2. GLEEVEC [Suspect]
     Dosage: 400 MG/DAY
     Dates: end: 20061107

REACTIONS (1)
  - CARDIAC OPERATION [None]
